FAERS Safety Report 14573135 (Version 1)
Quarter: 2018Q1

REPORT INFORMATION
  Report Type: Other
  Country: ES (occurrence: ES)
  Receive Date: 20180226
  Receipt Date: 20180226
  Transmission Date: 20180509
  Serious: Yes (Other)
  Sender: FDA-Public Use
  Company Number: ES-COLLEGIUM PHARMACEUTICAL, INC.-ES-2018DEP000487

PATIENT
  Age: 84 Year
  Sex: Female
  Weight: 80 kg

DRUGS (3)
  1. TAPENTADOL HYDROCHLORIDE [Suspect]
     Active Substance: TAPENTADOL HYDROCHLORIDE
     Indication: PRODUCT USED FOR UNKNOWN INDICATION
     Dosage: 25 MG, EVERY 12 HRS
     Dates: start: 20171113
  2. FORTECORTIN                        /00016001/ [Suspect]
     Active Substance: DEXAMETHASONE
     Indication: SPINAL COMPRESSION FRACTURE
     Dosage: 1 MG, BID
     Route: 002
  3. FORTECORTIN                        /00016001/ [Suspect]
     Active Substance: DEXAMETHASONE
     Dosage: 3 MG, QD
     Route: 002

REACTIONS (1)
  - Hallucinations, mixed [Not Recovered/Not Resolved]

NARRATIVE: CASE EVENT DATE: 20180108
